FAERS Safety Report 19850524 (Version 1)
Quarter: 2021Q3

REPORT INFORMATION
  Report Type: Spontaneous
  Country: GB (occurrence: GB)
  Receive Date: 20210917
  Receipt Date: 20210917
  Transmission Date: 20211014
  Serious: Yes (Other)
  Sender: FDA-Public Use
  Company Number: GB-SA-2021SA302199

PATIENT
  Sex: Female

DRUGS (1)
  1. APROVEL [Suspect]
     Active Substance: IRBESARTAN
     Dosage: UNK

REACTIONS (4)
  - Sensory disturbance [Unknown]
  - Heart rate abnormal [Unknown]
  - Irritability [Unknown]
  - Cardiac flutter [Unknown]
